FAERS Safety Report 7735545-X (Version None)
Quarter: 2011Q3

REPORT INFORMATION
  Report Type: 
  Country: None (occurrence: None)
  Receive Date: 20110907
  Receipt Date: 20110823
  Transmission Date: 20111222
  Serious: Yes (Other)
  Sender: FDA-Public Use
  Company Number: GB-WATSON-2011-11495

PATIENT
  Age: 37 Year
  Sex: Female
  Weight: 103 kg

DRUGS (7)
  1. ATROVENT [Concomitant]
     Indication: PRODUCT USED FOR UNKNOWN INDICATION
     Dosage: UNK
  2. CITALOPRAM HYDROBROMIDE [Concomitant]
     Indication: PRODUCT USED FOR UNKNOWN INDICATION
     Dosage: UNK
  3. MONTEKULAST SODIUM [Suspect]
     Indication: PRODUCT USED FOR UNKNOWN INDICATION
     Dosage: 10 MG, UNKNOWN
     Route: 048
     Dates: start: 20070101
  4. ALBUTEROL [Concomitant]
     Indication: PRODUCT USED FOR UNKNOWN INDICATION
     Dosage: UNK
  5. XOLAIR [Suspect]
     Indication: ASTHMA
     Dosage: 300 MG, UNKNOWN
     Route: 058
     Dates: start: 20091104, end: 20110504
  6. FLUTICASONE PROPIONATE/SALMETEROL [Suspect]
     Indication: ASTHMA
     Dosage: UNK
     Route: 065
     Dates: start: 20050101
  7. IPRATROPIUM BROMIDE [Suspect]
     Indication: ASTHMA
     Dosage: UNK
     Route: 065

REACTIONS (6)
  - SENSORY DISTURBANCE [None]
  - NERVOUS SYSTEM DISORDER [None]
  - DYSAESTHESIA [None]
  - HEADACHE [None]
  - TRANSIENT ISCHAEMIC ATTACK [None]
  - HEMIPARESIS [None]
